FAERS Safety Report 8519608-7 (Version None)
Quarter: 2012Q3

REPORT INFORMATION
  Report Type: 
  Country: None (occurrence: None)
  Receive Date: 20120718
  Receipt Date: 20120703
  Transmission Date: 20120928
  Serious: Yes (Other)
  Sender: FDA-Public Use
  Company Number: CHPA2012US015199

PATIENT
  Age: 33 Year
  Sex: Male

DRUGS (6)
  1. BENEFIBER W/ WHEAT DEXTRIN [Suspect]
     Indication: CONSTIPATION
     Dosage: 1 PACKET, IN THE EVENING WITH DINNER
     Route: 048
  2. LORATADINE [Concomitant]
     Dosage: 10 MG, AT NIGHT
  3. PAROXETINE [Concomitant]
     Dosage: 40 MG, UNK
  4. LEVOTHYROXINE SODIUM [Concomitant]
     Dosage: 25 MCG, A DAY
  5. SIMVASTATIN [Concomitant]
     Dosage: 40 MG, A DAY
  6. ASPIRIN [Concomitant]
     Dosage: UNK, DAILY
     Dates: start: 19960101

REACTIONS (3)
  - THERAPEUTIC RESPONSE UNEXPECTED [None]
  - OFF LABEL USE [None]
  - CEREBROVASCULAR ACCIDENT [None]
